FAERS Safety Report 7030483-2 (Version None)
Quarter: 2010Q4

REPORT INFORMATION
  Report Type: 
  Country: None (occurrence: None)
  Receive Date: 20101004
  Receipt Date: 20100913
  Transmission Date: 20110411
  Serious: Yes (Other)
  Sender: FDA-Public Use
  Company Number: DSJ-2010-16449

PATIENT
  Age: 69 Year
  Sex: Female

DRUGS (5)
  1. BENICAR [Suspect]
     Indication: HYPERTENSION
     Dosage: 20 MG (20 MG, 1 IN 1 D), PER ORAL; 40 MG (40 MG, 1 IN 1 D), PER ORAL
     Route: 048
     Dates: start: 20080101, end: 20100718
  2. BENICAR [Suspect]
     Indication: HYPERTENSION
     Dosage: 20 MG (20 MG, 1 IN 1 D), PER ORAL; 40 MG (40 MG, 1 IN 1 D), PER ORAL
     Route: 048
     Dates: start: 20100719
  3. VENLAFAXIN [Concomitant]
  4. CLONAZEPAM [Concomitant]
  5. INDAPAMIDE (INDAPAMIDE) (INDAPAMIDE) [Concomitant]

REACTIONS (3)
  - ANGINA PECTORIS [None]
  - BLOOD PRESSURE SYSTOLIC INCREASED [None]
  - DRUG INEFFECTIVE [None]
